FAERS Safety Report 8354004-7 (Version None)
Quarter: 2012Q2

REPORT INFORMATION
  Report Type: 
  Country: None (occurrence: None)
  Receive Date: 20120511
  Receipt Date: 20120504
  Transmission Date: 20120825
  Serious: Yes (Other)
  Sender: FDA-Public Use
  Company Number: US-ASTRAZENECA-2012SE16249

PATIENT
  Age: 46 Year
  Sex: Male
  Weight: 63.5 kg

DRUGS (52)
  1. SEROQUEL [Suspect]
     Route: 048
  2. SEROQUEL [Suspect]
     Route: 048
  3. SEROQUEL [Suspect]
     Route: 048
  4. SEROQUEL [Suspect]
     Route: 048
  5. SEROQUEL [Suspect]
     Route: 048
  6. SEROQUEL [Suspect]
     Route: 048
  7. SEROQUEL [Suspect]
     Route: 048
  8. SEROQUEL [Suspect]
     Route: 048
  9. SEROQUEL [Suspect]
     Route: 048
  10. SEROQUEL [Suspect]
     Route: 048
  11. SEROQUEL [Suspect]
     Route: 048
  12. SEROQUEL [Suspect]
     Route: 048
     Dates: start: 20110101
  13. ASPIRIN [Concomitant]
  14. SEROQUEL [Suspect]
     Indication: BIPOLAR I DISORDER
     Route: 048
     Dates: start: 20080101
  15. SEROQUEL [Suspect]
     Route: 048
  16. SEROQUEL [Suspect]
     Route: 048
  17. SEROQUEL [Suspect]
     Route: 048
  18. SEROQUEL [Suspect]
     Route: 048
  19. SEROQUEL [Suspect]
     Route: 048
  20. SEROQUEL [Suspect]
     Route: 048
  21. SEROQUEL [Suspect]
     Indication: INSOMNIA
     Route: 048
     Dates: start: 20080101
  22. SEROQUEL [Suspect]
     Indication: BIPOLAR DISORDER
     Route: 048
     Dates: start: 20080101
  23. SEROQUEL [Suspect]
     Indication: POST-TRAUMATIC STRESS DISORDER
     Route: 048
     Dates: start: 20080101
  24. SEROQUEL [Suspect]
     Route: 048
  25. SEROQUEL [Suspect]
     Route: 048
  26. SEROQUEL [Suspect]
     Route: 048
  27. SEROQUEL [Suspect]
     Route: 048
  28. SEROQUEL [Suspect]
     Route: 048
  29. SEROQUEL [Suspect]
     Route: 048
  30. SEROQUEL [Suspect]
     Route: 048
  31. SEROQUEL [Suspect]
     Route: 048
     Dates: start: 20110101
  32. CELEXA [Concomitant]
     Indication: DEPRESSION
     Route: 048
     Dates: start: 20110601
  33. SEROQUEL [Suspect]
     Route: 048
  34. SEROQUEL [Suspect]
     Indication: SCHIZOPHRENIA
     Route: 048
     Dates: start: 20080101
  35. SEROQUEL [Suspect]
     Route: 048
  36. SEROQUEL [Suspect]
     Route: 048
  37. SEROQUEL [Suspect]
     Route: 048
  38. SEROQUEL [Suspect]
     Route: 048
  39. SEROQUEL [Suspect]
     Route: 048
     Dates: start: 20110101
  40. SEROQUEL [Suspect]
     Route: 048
  41. SEROQUEL [Suspect]
     Route: 048
  42. SEROQUEL [Suspect]
     Route: 048
  43. SEROQUEL [Suspect]
     Route: 048
  44. SEROQUEL [Suspect]
     Route: 048
  45. SEROQUEL [Suspect]
     Route: 048
  46. SEROQUEL [Suspect]
     Route: 048
  47. SEROQUEL [Suspect]
     Route: 048
  48. SEROQUEL [Suspect]
     Route: 048
  49. SEROQUEL [Suspect]
     Route: 048
  50. SEROQUEL [Suspect]
     Route: 048
  51. SEROQUEL [Suspect]
     Route: 048
     Dates: start: 20110101
  52. SEROQUEL [Suspect]
     Route: 048
     Dates: start: 20110101

REACTIONS (26)
  - SELF INJURIOUS BEHAVIOUR [None]
  - INSOMNIA [None]
  - TREMOR [None]
  - WEIGHT DECREASED [None]
  - ADVERSE EVENT [None]
  - APHAGIA [None]
  - COLD SWEAT [None]
  - DISTURBANCE IN ATTENTION [None]
  - DECREASED APPETITE [None]
  - VISUAL ACUITY REDUCED [None]
  - BLINDNESS [None]
  - AGGRESSION [None]
  - HYPOACUSIS [None]
  - NIGHTMARE [None]
  - PALLOR [None]
  - THINKING ABNORMAL [None]
  - SLEEP DISORDER [None]
  - PSYCHOTIC DISORDER [None]
  - ANXIETY [None]
  - RESTLESSNESS [None]
  - SUICIDAL IDEATION [None]
  - WITHDRAWAL SYNDROME [None]
  - FEELING ABNORMAL [None]
  - APATHY [None]
  - DEPRESSION [None]
  - INTENTIONAL DRUG MISUSE [None]
